FAERS Safety Report 4408219-0 (Version None)
Quarter: 2004Q3

REPORT INFORMATION
  Report Type: 
  Country: None (occurrence: None)
  Receive Date: 20040726
  Receipt Date: 20040726
  Transmission Date: 20050211
  Serious: Yes (Death)
  Sender: FDA-Public Use
  Company Number: None

PATIENT
  Age: 68 Year
  Sex: Male

DRUGS (10)
  1. AVELOX [Suspect]
     Indication: URINARY TRACT INFECTION
     Dosage: 400 MG QD  IV
     Route: 042
     Dates: start: 20030207, end: 20030209
  2. AVELOX [Suspect]
     Indication: UROSEPSIS
     Dosage: 400 MG QD  IV
     Route: 042
     Dates: start: 20030207, end: 20030209
  3. AMARYL [Concomitant]
  4. ACTOS [Concomitant]
  5. GLUCOPHAGE [Concomitant]
  6. ZOCOR [Concomitant]
  7. COREG [Concomitant]
  8. LANOXIN [Concomitant]
  9. ASPIRIN [Concomitant]
  10. LOVENOX [Concomitant]

REACTIONS (5)
  - ARRHYTHMIA [None]
  - BODY TEMPERATURE INCREASED [None]
  - CARDIO-RESPIRATORY ARREST [None]
  - CONFUSIONAL STATE [None]
  - HYPOTENSION [None]
